FAERS Safety Report 4626963-7 (Version None)
Quarter: 2005Q1

REPORT INFORMATION
  Report Type: 
  Country: None (occurrence: None)
  Receive Date: 20050331
  Receipt Date: 20050316
  Transmission Date: 20050727
  Serious: Yes (Life-Threatening)
  Sender: FDA-Public Use
  Company Number: DSA_26173_2005

PATIENT

DRUGS (6)
  1. DILTIAZEM HYDROCHLORIDE [Suspect]
     Dosage: 360 MG Q DAY PO
     Route: 048
  2. ATENOLOL [Suspect]
     Dosage: 50 MG Q DAY PO
     Route: 048
  3. ISOSORBIDE MONONITRATE [Concomitant]
  4. FUROSEMIDE [Concomitant]
  5. ATORVASTATIN CALCIUM [Concomitant]
  6. CLOPIDOGREL [Concomitant]

REACTIONS (4)
  - BLOOD CREATININE DECREASED [None]
  - BLOOD POTASSIUM INCREASED [None]
  - BRADYCARDIA [None]
  - CIRCULATORY COLLAPSE [None]
